FAERS Safety Report 13369212 (Version 1)
Quarter: 2017Q1

REPORT INFORMATION
  Report Type: Report from Study
  Country: US (occurrence: US)
  Receive Date: 20170324
  Receipt Date: 20170324
  Transmission Date: 20170429
  Serious: No
  Sender: FDA-Public Use
  Company Number: PHEH2017US008793

PATIENT

DRUGS (1)
  1. COSENTYX [Suspect]
     Active Substance: SECUKINUMAB
     Indication: DYSPNOEA
     Dosage: 150 MG, UNK
     Route: 030
     Dates: start: 20170308

REACTIONS (3)
  - Incorrect route of drug administration [Unknown]
  - Product use issue [Unknown]
  - Dyspnoea [Unknown]
